FAERS Safety Report 20792870 (Version 1)
Quarter: 2022Q2

REPORT INFORMATION
  Report Type: Spontaneous
  Country: US (occurrence: US)
  Receive Date: 20220506
  Receipt Date: 20220506
  Transmission Date: 20220721
  Serious: No
  Sender: FDA-Public Use
  Company Number: US-UCBSA-2021032334

PATIENT
  Age: 63 Year
  Sex: Female
  Weight: 66.213 kg

DRUGS (1)
  1. CIMZIA [Suspect]
     Active Substance: CERTOLIZUMAB PEGOL
     Indication: Product used for unknown indication
     Dosage: 400 MILLIGRAM, EV 4 WEEKS
     Route: 058
     Dates: start: 202007

REACTIONS (2)
  - Condition aggravated [Unknown]
  - Ear infection [Unknown]

NARRATIVE: CASE EVENT DATE: 20210629
